FAERS Safety Report 10026005 (Version 1)
Quarter: 2014Q1

REPORT INFORMATION
  Report Type: Spontaneous
  Country: US (occurrence: US)
  Receive Date: 20140320
  Receipt Date: 20140320
  Transmission Date: 20141002
  Serious: No
  Sender: FDA-Public Use
  Company Number: US-GILEAD-2014-0097294

PATIENT
  Sex: Female

DRUGS (3)
  1. RANEXA [Suspect]
     Indication: PRODUCT USED FOR UNKNOWN INDICATION
     Dosage: 500 MG, UNK
     Route: 065
  2. RANEXA [Suspect]
     Dosage: 1000 MG, UNK
     Route: 065
  3. RANEXA [Suspect]
     Dosage: 500 MG, UNK
     Route: 065

REACTIONS (1)
  - Dizziness [Unknown]
